FAERS Safety Report 9293028 (Version 1)
Quarter: 2013Q2

REPORT INFORMATION
  Report Type: Spontaneous
  Country: US (occurrence: None)
  Receive Date: 20130515
  Receipt Date: 20130515
  Transmission Date: 20140414
  Serious: Yes (Other)
  Sender: FDA-Public Use
  Company Number: None

PATIENT
  Age: 37 Year
  Sex: Female
  Weight: 73.48 kg

DRUGS (1)
  1. LORAZEPAM [Suspect]
     Indication: SLEEP DISORDER
     Dates: start: 20130412, end: 20130414

REACTIONS (2)
  - Hallucination [None]
  - Insomnia [None]
